FAERS Safety Report 15653170 (Version 1)
Quarter: 2018Q4

REPORT INFORMATION
  Report Type: Spontaneous
  Country: US (occurrence: US)
  Receive Date: 20181123
  Receipt Date: 20181123
  Transmission Date: 20190205
  Serious: No
  Sender: FDA-Public Use
  Company Number: US-NOVOPROD-619953

PATIENT
  Age: 74 Year
  Sex: Female

DRUGS (1)
  1. NOVOLOG [Suspect]
     Active Substance: INSULIN ASPART
     Indication: DIABETES MELLITUS INADEQUATE CONTROL
     Dosage: 5-10 UNITS THREE TIMED DAILY
     Route: 058
     Dates: start: 20180306, end: 20180830

REACTIONS (1)
  - Skin wound [Recovered/Resolved]

NARRATIVE: CASE EVENT DATE: 201805
